FAERS Safety Report 8826551 (Version 1)
Quarter: 2012Q4

REPORT INFORMATION
  Report Type: 
  Country: US (occurrence: US)
  Receive Date: 20121005
  Receipt Date: 20121005
  Transmission Date: 20130627
  Serious: Yes (Other)
  Sender: FDA-Public Use
  Company Number: CHPA2012US020908

PATIENT
  Sex: Male

DRUGS (9)
  1. PREVACID 24HR 15MG [Suspect]
     Indication: DYSPEPSIA
     Dosage: 15 mg a day
     Route: 048
     Dates: start: 20121002
  2. PREVACID 24HR 15MG [Suspect]
     Dosage: 7 days
     Route: 048
     Dates: start: 2010
  3. NASONEX [Concomitant]
     Indication: HYPERSENSITIVITY
  4. TUMS [Concomitant]
     Indication: DYSPEPSIA
  5. BENADRYL ^PFIZER WARNER-LAMBERT^ [Concomitant]
     Indication: HYPERSENSITIVITY
  6. CLARITIN-D [Concomitant]
     Indication: HYPERSENSITIVITY
  7. MUCINEX [Concomitant]
  8. STEROIDS NOS [Concomitant]
     Route: 061
  9. METHYLPREDNISOLONE [Concomitant]

REACTIONS (5)
  - Bronchitis [Recovered/Resolved]
  - Off label use [Unknown]
  - Therapeutic response unexpected [Unknown]
  - Incorrect drug administration duration [Unknown]
  - Wrong technique in drug usage process [Unknown]
